FAERS Safety Report 4548659-2 (Version None)
Quarter: 2005Q1

REPORT INFORMATION
  Report Type: 
  Country: None (occurrence: None)
  Receive Date: 20050107
  Receipt Date: 20050107
  Transmission Date: 20050727
  Serious: Yes (Disabling)
  Sender: FDA-Public Use
  Company Number: None

PATIENT
  Age: 44 Year
  Sex: Female
  Weight: 59 kg

DRUGS (9)
  1. DOXORUBICIN  2 MG/ ML (BEDFORD) [Suspect]
     Indication: BREAST CANCER
     Dosage: 60 MG/M2 IV Q 2 WKS
     Route: 042
     Dates: start: 20041203
  2. DOXORUBICIN  2 MG/ ML (BEDFORD) [Suspect]
     Indication: BREAST CANCER
     Dosage: 60 MG/M2 IV Q 2 WKS
     Route: 042
     Dates: start: 20041217
  3. DOXORUBICIN  2 MG/ ML (BEDFORD) [Suspect]
     Indication: BREAST CANCER
     Dosage: 60 MG/M2 IV Q 2 WKS
     Route: 042
     Dates: start: 20041230
  4. CYCLOPHOSPHAMIDE [Suspect]
     Indication: BREAST CANCER
     Dosage: 600 MG /M2 IV Q 2 WKS
     Route: 042
     Dates: start: 20041203
  5. CYCLOPHOSPHAMIDE [Suspect]
     Indication: BREAST CANCER
     Dosage: 600 MG /M2 IV Q 2 WKS
     Route: 042
     Dates: start: 20041217
  6. CYCLOPHOSPHAMIDE [Suspect]
     Indication: BREAST CANCER
     Dosage: 600 MG /M2 IV Q 2 WKS
     Route: 042
     Dates: start: 20041230
  7. FILGRASTIN [Concomitant]
  8. ANZEMET [Concomitant]
  9. DECADRON [Concomitant]

REACTIONS (1)
  - PALMAR-PLANTAR ERYTHRODYSAESTHESIA SYNDROME [None]
